FAERS Safety Report 24764085 (Version 5)
Quarter: 2025Q2

REPORT INFORMATION
  Report Type: Report from Study
  Country: BR (occurrence: BR)
  Receive Date: 20241223
  Receipt Date: 20250505
  Transmission Date: 20250716
  Serious: No
  Sender: JOHNSON AND JOHNSON
  Company Number: BR-JNJFOC-20241172019

PATIENT
  Age: 34 Year
  Sex: Female
  Weight: 69 kg

DRUGS (2)
  1. GOLIMUMAB [Suspect]
     Active Substance: GOLIMUMAB
     Indication: Rheumatoid arthritis
     Route: 058
     Dates: start: 20241124
  2. GOLIMUMAB [Suspect]
     Active Substance: GOLIMUMAB

REACTIONS (3)
  - Needle issue [Unknown]
  - Application site erythema [Unknown]
  - Fear [Unknown]
